FAERS Safety Report 6193740-8 (Version None)
Quarter: 2009Q2

REPORT INFORMATION
  Report Type: 
  Country: None (occurrence: None)
  Receive Date: 20090518
  Receipt Date: 20090506
  Transmission Date: 20091009
  Serious: Yes (Hospitalization, Disabling)
  Sender: FDA-Public Use
  Company Number: US-PFIZER INC-2008025013

PATIENT
  Sex: Female
  Weight: 61 kg

DRUGS (10)
  1. SUNITINIB MALATE [Suspect]
     Indication: BREAST CANCER METASTATIC
     Dosage: 12.5 MG, 2X/DAY
     Route: 048
     Dates: start: 20071127, end: 20080319
  2. *PACLITAXEL [Suspect]
     Indication: BREAST CANCER METASTATIC
     Dosage: 169 MG, UNK
     Route: 042
     Dates: start: 20071127, end: 20080305
  3. ATENOLOL [Concomitant]
     Route: 048
     Dates: start: 20040923
  4. ATORVASTATIN [Concomitant]
     Route: 048
     Dates: start: 20040923
  5. HYZAAR [Concomitant]
     Route: 048
     Dates: start: 20040923
  6. MEGESTROL ACETATE [Concomitant]
     Route: 048
     Dates: start: 20080305
  7. ONDANSETRON HYDROCHLORIDE [Concomitant]
     Route: 048
     Dates: start: 20071127
  8. COMPAZINE [Concomitant]
     Route: 048
     Dates: start: 20071127
  9. PANTOPRAZOLE SODIUM [Concomitant]
     Route: 048
     Dates: start: 20080123
  10. LORTAB [Concomitant]
     Route: 048
     Dates: start: 20071001

REACTIONS (7)
  - ANAEMIA [None]
  - ARTHRALGIA [None]
  - DEHYDRATION [None]
  - ELECTROLYTE IMBALANCE [None]
  - GENERAL PHYSICAL HEALTH DETERIORATION [None]
  - RENAL FAILURE ACUTE [None]
  - THROMBOCYTOPENIA [None]
